FAERS Safety Report 6618772-4 (Version None)
Quarter: 2010Q1

REPORT INFORMATION
  Report Type: 
  Country: None (occurrence: None)
  Receive Date: 20100305
  Receipt Date: 20100305
  Transmission Date: 20100710
  Serious: Yes (Other)
  Sender: FDA-Public Use
  Company Number: None

PATIENT
  Sex: Female
  Weight: 9.1 kg

DRUGS (3)
  1. TAMIFLU [Suspect]
     Indication: RESPIRATORY SYNCYTIAL VIRUS BRONCHIOLITIS
     Dosage: 2.5ML TWICE A DAY ORAL
     Route: 048
     Dates: start: 20100214
  2. TAMIFLU [Suspect]
     Indication: RESPIRATORY SYNCYTIAL VIRUS BRONCHIOLITIS
     Dosage: 2.5ML TWICE A DAY ORAL
     Route: 048
     Dates: start: 20100216
  3. PREDNISOLONE [Concomitant]

REACTIONS (7)
  - AGITATION [None]
  - BALANCE DISORDER [None]
  - CRYING [None]
  - DISORIENTATION [None]
  - HYPOPHAGIA [None]
  - INSOMNIA [None]
  - PRODUCT LABEL ISSUE [None]
